FAERS Safety Report 5327954-3 (Version None)
Quarter: 2007Q2

REPORT INFORMATION
  Report Type: 
  Country: None (occurrence: None)
  Receive Date: 20070517
  Receipt Date: 20070507
  Transmission Date: 20071010
  Serious: Yes (Life-Threatening)
  Sender: FDA-Public Use
  Company Number: SE-PFIZER INC-2007021523

PATIENT
  Sex: Female
  Weight: 66.1 kg

DRUGS (10)
  1. SUTENT [Suspect]
     Indication: RENAL CELL CARCINOMA STAGE UNSPECIFIED
     Dates: start: 20070122, end: 20070130
  2. ANERVAN [Concomitant]
  3. ANTIDEPRESSANTS [Concomitant]
  4. PERPHENAZINE [Concomitant]
     Route: 048
  5. BIPERIDEN HYDROCHLORIDE TAB [Concomitant]
     Route: 048
  6. ALPRAZOLAM [Concomitant]
     Route: 048
  7. PARACETAMOL [Concomitant]
     Route: 048
  8. ERGOTAMINE [Concomitant]
     Route: 054
  9. CHLORCYCLIZINE [Concomitant]
     Route: 054
  10. CAFFEINE [Concomitant]
     Route: 054

REACTIONS (1)
  - CEREBRAL HAEMORRHAGE [None]
